FAERS Safety Report 8455951-8 (Version None)
Quarter: 2012Q2

REPORT INFORMATION
  Report Type: 
  Country: None (occurrence: None)
  Receive Date: 20120621
  Receipt Date: 20120618
  Transmission Date: 20120825
  Serious: Yes (Hospitalization)
  Sender: FDA-Public Use
  Company Number: FR-ROCHE-1044312

PATIENT
  Sex: Male

DRUGS (5)
  1. IBUPROFEN [Concomitant]
     Route: 048
  2. VEMURAFENIB [Suspect]
     Indication: METASTATIC MALIGNANT MELANOMA
     Route: 048
     Dates: start: 20120102
  3. ZOMETA [Concomitant]
     Indication: HYPERCALCAEMIA
     Route: 042
     Dates: start: 20120101
  4. ACETAMINOPHEN [Concomitant]
     Route: 048
  5. PREDNISONE TAB [Concomitant]
     Route: 048
     Dates: start: 20120101

REACTIONS (1)
  - IIIRD NERVE PARALYSIS [None]
